FAERS Safety Report 18655808 (Version 1)
Quarter: 2020Q4

REPORT INFORMATION
  Report Type: Spontaneous
  Country: US (occurrence: US)
  Receive Date: 20201223
  Receipt Date: 20201223
  Transmission Date: 20210114
  Serious: No
  Sender: FDA-Public Use
  Company Number: US-PFIZER INC-2020505717

PATIENT
  Age: 77 Year
  Sex: Female
  Weight: 61.23 kg

DRUGS (1)
  1. DISOPYRAMIDE PHOSPHATE. [Suspect]
     Active Substance: DISOPYRAMIDE PHOSPHATE
     Indication: VENTRICULAR EXTRASYSTOLES
     Dosage: UNK, 4X/DAY (ONE SHE HAD TO TAKE FOUR TIMES A DAY)

REACTIONS (1)
  - Drug ineffective [Unknown]
